FAERS Safety Report 5065149-1 (Version None)
Quarter: 2006Q3

REPORT INFORMATION
  Report Type: 
  Country: None (occurrence: None)
  Receive Date: 20060725
  Receipt Date: 20060711
  Transmission Date: 20061208
  Serious: Yes (Congenital Anomaly)
  Sender: FDA-Public Use
  Company Number: 2006-108DP#2

PATIENT
  Sex: Female

DRUGS (1)
  1. VALPROATE SODIUM [Suspect]
     Indication: EPILEPSY
     Dosage: 1500MG/DAY
     Route: 064

REACTIONS (5)
  - APLASIA [None]
  - BONE DISORDER [None]
  - FINGER HYPOPLASIA [None]
  - SKULL MALFORMATION [None]
  - SYNOSTOSIS [None]
